FAERS Safety Report 16416278 (Version 4)
Quarter: 2019Q3

REPORT INFORMATION
  Report Type: Report from Study
  Country: None (occurrence: AR)
  Receive Date: 20190611
  Receipt Date: 20190911
  Transmission Date: 20191004
  Serious: Yes (Other)
  Sender: FDA-Public Use
  Company Number: AR-ABBVIE-19K-007-2815885-00

PATIENT
  Age: 29 Year
  Sex: Female

DRUGS (3)
  1. HUMIRA [Suspect]
     Active Substance: ADALIMUMAB
     Indication: UVEITIS
     Route: 058
     Dates: start: 20120101, end: 201805
  2. HUMIRA [Suspect]
     Active Substance: ADALIMUMAB
     Indication: NERVOUSNESS
  3. HUMIRA [Suspect]
     Active Substance: ADALIMUMAB
     Indication: PSORIASIS

REACTIONS (13)
  - Tinnitus [Not Recovered/Not Resolved]
  - Psoriasis [Not Recovered/Not Resolved]
  - Headache [Not Recovered/Not Resolved]
  - Blindness [Unknown]
  - Limb injury [Unknown]
  - Hypoaesthesia [Unknown]
  - Vogt-Koyanagi-Harada disease [Not Recovered/Not Resolved]
  - Pharyngeal disorder [Not Recovered/Not Resolved]
  - Arthralgia [Unknown]
  - Uveitis [Recovering/Resolving]
  - Skin fissures [Unknown]
  - Anxiety [Unknown]
  - Gingival swelling [Unknown]

NARRATIVE: CASE EVENT DATE: 201805
